FAERS Safety Report 20186308 (Version 1)
Quarter: 2021Q4

REPORT INFORMATION
  Report Type: Spontaneous
  Country: BG (occurrence: BG)
  Receive Date: 20211215
  Receipt Date: 20211215
  Transmission Date: 20220303
  Serious: Yes (Other)
  Sender: FDA-Public Use
  Company Number: BG-ASTELLAS-2021US047819

PATIENT
  Age: 73 Year
  Sex: Male

DRUGS (1)
  1. XTANDI [Suspect]
     Active Substance: ENZALUTAMIDE
     Indication: Hormone-refractory prostate cancer
     Route: 048

REACTIONS (1)
  - Osteosclerosis [Unknown]

NARRATIVE: CASE EVENT DATE: 20210701
